FAERS Safety Report 10868816 (Version 4)
Quarter: 2015Q2

REPORT INFORMATION
  Report Type: Report from Study
  Country: CH (occurrence: CH)
  Receive Date: 20150225
  Receipt Date: 20150504
  Transmission Date: 20150821
  Serious: Yes (Other)
  Sender: FDA-Public Use
  Company Number: PHHY2015CH019433

PATIENT
  Age: 50 Year
  Sex: Female

DRUGS (5)
  1. LDK378 [Suspect]
     Active Substance: CERITINIB
     Dosage: 450 MG, UNK
     Route: 048
     Dates: start: 201412, end: 20150315
  2. LDK378 [Suspect]
     Active Substance: CERITINIB
     Indication: LUNG ADENOCARCINOMA
     Dosage: 600 MG, UNK
     Route: 048
     Dates: start: 20140819
  3. MAGNESIUM [Concomitant]
     Active Substance: MAGNESIUM
     Indication: PRODUCT USED FOR UNKNOWN INDICATION
     Route: 065
  4. DEXAMETHASONE. [Concomitant]
     Active Substance: DEXAMETHASONE
     Indication: PRODUCT USED FOR UNKNOWN INDICATION
     Route: 065
  5. RANITIDINE [Concomitant]
     Active Substance: RANITIDINE\RANITIDINE HYDROCHLORIDE
     Indication: PRODUCT USED FOR UNKNOWN INDICATION
     Route: 065

REACTIONS (18)
  - Hyperglycaemia [Recovered/Resolved]
  - Metastases to central nervous system [Not Recovered/Not Resolved]
  - Thrombocytopenia [Recovered/Resolved]
  - Anaemia [Recovered/Resolved]
  - Nausea [Recovered/Resolved]
  - Hypokalaemia [Recovered/Resolved]
  - Polydipsia [Unknown]
  - Concomitant disease progression [Not Recovered/Not Resolved]
  - Myopathy [Recovered/Resolved]
  - Hypophosphataemia [Recovered/Resolved]
  - Hypocalcaemia [Recovered/Resolved]
  - Paraplegia [Unknown]
  - Dry skin [Unknown]
  - Hypoalbuminaemia [Recovered/Resolved]
  - Dry mouth [Unknown]
  - Pruritus [Unknown]
  - Hyperphagia [Unknown]
  - Neutropenia [Recovered/Resolved]

NARRATIVE: CASE EVENT DATE: 20141013
